FAERS Safety Report 4949791-1 (Version None)
Quarter: 2006Q1

REPORT INFORMATION
  Report Type: 
  Country: None (occurrence: None)
  Receive Date: 20060315
  Receipt Date: 20060223
  Transmission Date: 20060701
  Serious: No
  Sender: FDA-Public Use
  Company Number: IT200603000363

PATIENT
  Age: 89 Year
  Sex: Female

DRUGS (4)
  1. ZYPREXA [Suspect]
     Indication: MANIA
     Dosage: 2.5 MG, 2/D, ORAL
     Route: 048
     Dates: start: 20051212, end: 20060120
  2. ASCRIPTIN (ACETYLSALICYLIC ACID, ALUMINIUM HYDROXIDE, MAGNESIUM HYDROX [Concomitant]
  3. NEXIUM /UNK/(ESOMEPRAZOLE) [Concomitant]
  4. AUGMENTIN /UNK/ (AMOXICILLIN TRIHYDRATE, CLAVULANATE POTASSIUM) [Concomitant]

REACTIONS (1)
  - NEUTROPENIA [None]
